FAERS Safety Report 10586748 (Version 1)
Quarter: 2014Q4

REPORT INFORMATION
  Report Type: Spontaneous
  Country: US (occurrence: None)
  Receive Date: 20141114
  Receipt Date: 20141114
  Transmission Date: 20150529
  Serious: No
  Sender: FDA-Public Use
  Company Number: None

PATIENT
  Age: 64 Year
  Sex: Female

DRUGS (2)
  1. URSODIOL. [Suspect]
     Active Substance: URSODIOL
     Indication: CHOLELITHIASIS
     Dosage: 1 CAPSULE, BID, ORAL
     Route: 048
     Dates: start: 20140823, end: 20141113
  2. SYNTHROID [Concomitant]
     Active Substance: LEVOTHYROXINE SODIUM

REACTIONS (2)
  - Product quality issue [None]
  - Oral discomfort [None]

NARRATIVE: CASE EVENT DATE: 20141113
